FAERS Safety Report 7205600-1 (Version None)
Quarter: 2010Q4

REPORT INFORMATION
  Report Type: 
  Country: None (occurrence: None)
  Receive Date: 20101231
  Receipt Date: 20101224
  Transmission Date: 20110411
  Serious: Yes (Hospitalization)
  Sender: FDA-Public Use
  Company Number: US-NOVOPROD-317870

PATIENT
  Age: 55 Year
  Sex: Female

DRUGS (3)
  1. VICTOZA [Suspect]
     Indication: WEIGHT DECREASED
     Dosage: 0.6 MG, QD
     Route: 058
     Dates: start: 20100717, end: 20100809
  2. VICTOZA [Suspect]
     Dosage: 0.6 MG, QD
     Route: 058
     Dates: start: 20100101, end: 20101015
  3. BYETTA [Concomitant]
     Indication: TYPE 2 DIABETES MELLITUS
     Route: 058

REACTIONS (2)
  - INJECTION SITE CELLULITIS [None]
  - WEIGHT DECREASED [None]
